FAERS Safety Report 5960058-5 (Version None)
Quarter: 2008Q4

REPORT INFORMATION
  Report Type: 
  Country: None (occurrence: None)
  Receive Date: 20081120
  Receipt Date: 20081105
  Transmission Date: 20090506
  Serious: No
  Sender: FDA-Public Use
  Company Number: GB-PFIZER INC-2008057244

PATIENT
  Sex: Male
  Weight: 100 kg

DRUGS (1)
  1. SUTENT [Suspect]
     Indication: RENAL CELL CARCINOMA
     Route: 048
     Dates: start: 20080416, end: 20080627

REACTIONS (1)
  - NO ADVERSE EVENT [None]
